APPROVED DRUG PRODUCT: ARBLI
Active Ingredient: LOSARTAN POTASSIUM
Strength: 10MG/ML
Dosage Form/Route: SUSPENSION;ORAL
Application: N218772 | Product #001
Applicant: SCIENTURE LLC
Approved: Mar 13, 2025 | RLD: Yes | RS: Yes | Type: RX

PATENTS:
Patent 12156869 | Expires: Oct 7, 2041
Patent 12156869 | Expires: Oct 7, 2041
Patent 12156869 | Expires: Oct 7, 2041
Patent 11890273 | Expires: Oct 7, 2041